FAERS Safety Report 21023353 (Version 1)
Quarter: 2022Q2

REPORT INFORMATION
  Report Type: Spontaneous
  Country: US (occurrence: None)
  Receive Date: 20220629
  Receipt Date: 20220629
  Transmission Date: 20220721
  Serious: No
  Sender: FDA-Public Use
  Company Number: None

PATIENT
  Age: 82 Year
  Sex: Male

DRUGS (8)
  1. CAPECITABINE [Suspect]
     Active Substance: CAPECITABINE
     Indication: Colon cancer
     Dosage: OTHER FREQUENCY : Q12HOURS;?
     Route: 048
     Dates: start: 202204
  2. CHLORTHALIDONE [Concomitant]
  3. ELIQUIS [Concomitant]
     Active Substance: APIXABAN
  4. ENALAPRIL [Concomitant]
     Active Substance: ENALAPRIL
  5. FENOFIBRATE [Concomitant]
  6. KLOR-CON [Concomitant]
     Active Substance: POTASSIUM CHLORIDE
  7. MULTAQ [Concomitant]
     Active Substance: DRONEDARONE
  8. PRAVASTATIN [Concomitant]
     Active Substance: PRAVASTATIN

REACTIONS (3)
  - Palmar-plantar erythrodysaesthesia syndrome [None]
  - Skin exfoliation [None]
  - Pain in extremity [None]
